FAERS Safety Report 5125410-9 (Version None)
Quarter: 2006Q3

REPORT INFORMATION
  Report Type: 
  Country: None (occurrence: None)
  Receive Date: 20060822
  Receipt Date: 20060720
  Transmission Date: 20061208
  Serious: Yes (Hospitalization)
  Sender: FDA-Public Use
  Company Number: PHEH2006US09507

PATIENT

DRUGS (1)
  1. ENABLEX [Suspect]

REACTIONS (1)
  - CONSTIPATION [None]
